FAERS Safety Report 6378750-X (Version None)
Quarter: 2009Q3

REPORT INFORMATION
  Report Type: 
  Country: None (occurrence: None)
  Receive Date: 20090928
  Receipt Date: 20090918
  Transmission Date: 20100115
  Serious: Yes (Other)
  Sender: FDA-Public Use
  Company Number: BR-ASTRAZENECA-2009SE14364

PATIENT
  Age: 41 Year
  Sex: Female

DRUGS (2)
  1. ZOALDEX LA [Suspect]
     Indication: UTERINE LEIOMYOMA
     Route: 058
     Dates: start: 20090824
  2. SIBUTRAMIN [Concomitant]
     Indication: WEIGHT DECREASED
     Route: 048
     Dates: start: 20090907

REACTIONS (1)
  - MENSTRUAL DISORDER [None]
